FAERS Safety Report 6596610-6 (Version None)
Quarter: 2010Q1

REPORT INFORMATION
  Report Type: 
  Country: None (occurrence: None)
  Receive Date: 20100216
  Receipt Date: 20100201
  Transmission Date: 20100710
  Serious: Yes (Hospitalization)
  Sender: FDA-Public Use
  Company Number: 238146K09USA

PATIENT
  Age: 40 Year
  Sex: Male
  Weight: 72 kg

DRUGS (6)
  1. REBIF [Suspect]
     Indication: MULTIPLE SCLEROSIS
     Dosage: 44 MCG, 3 IN 1 WEEKS, SUBCUTANEOUS
     Route: 058
     Dates: start: 20060802, end: 20091015
  2. OXYBUTYNIN (OXYBUTYNIN /00538901/) [Concomitant]
  3. TERAZOSIN HCL [Concomitant]
  4. PROVIGIL (MODAFINAL) [Concomitant]
  5. BACLOFEN [Concomitant]
  6. OXYCODONE HCL [Concomitant]

REACTIONS (11)
  - CHEST PAIN [None]
  - CONDITION AGGRAVATED [None]
  - DIZZINESS [None]
  - DYSPNOEA [None]
  - FACIAL PALSY [None]
  - HEADACHE [None]
  - HEART RATE DECREASED [None]
  - MULTIPLE SCLEROSIS [None]
  - PARAESTHESIA [None]
  - REFUSAL OF TREATMENT BY PATIENT [None]
  - TRANSIENT ISCHAEMIC ATTACK [None]
